FAERS Safety Report 12780478 (Version 1)
Quarter: 2016Q3

REPORT INFORMATION
  Report Type: Spontaneous
  Country: AU (occurrence: AU)
  Receive Date: 20160926
  Receipt Date: 20160926
  Transmission Date: 20161109
  Serious: Yes (Other)
  Sender: FDA-Public Use
  Company Number: AU-IPSEN BIOPHARMACEUTICALS, INC.-2016-07766

PATIENT
  Sex: Male

DRUGS (3)
  1. DYSPORT [Suspect]
     Active Substance: ABOBOTULINUMTOXINA
     Indication: SKIN WRINKLING
  2. DYSPORT [Suspect]
     Active Substance: ABOBOTULINUMTOXINA
     Indication: SKIN WRINKLING
     Dosage: NOT REPORTED
     Route: 065
     Dates: start: 201405, end: 201405
  3. DYSPORT [Suspect]
     Active Substance: ABOBOTULINUMTOXINA
     Indication: PRODUCT USE ISSUE

REACTIONS (15)
  - Neuralgia [Recovering/Resolving]
  - Headache [Recovering/Resolving]
  - Pelvic floor muscle weakness [Recovering/Resolving]
  - Incontinence [Recovering/Resolving]
  - Amnesia [Recovering/Resolving]
  - Physical disability [Recovering/Resolving]
  - Tinnitus [Recovering/Resolving]
  - Abdominal pain [Recovering/Resolving]
  - Asthenia [Recovering/Resolving]
  - Pain [Recovering/Resolving]
  - Neuromuscular toxicity [Recovering/Resolving]
  - Incorrect route of drug administration [Unknown]
  - Myalgia [Recovering/Resolving]
  - Mental impairment [Recovering/Resolving]
  - Eye disorder [Recovering/Resolving]

NARRATIVE: CASE EVENT DATE: 2014
